FAERS Safety Report 9891071 (Version 1)
Quarter: 2014Q1

REPORT INFORMATION
  Report Type: Spontaneous
  Country: US (occurrence: US)
  Receive Date: 20140212
  Receipt Date: 20140212
  Transmission Date: 20141002
  Serious: No
  Sender: FDA-Public Use
  Company Number: US-ACORDA-ACO_39098_2013

PATIENT
  Sex: Male
  Weight: 97.51 kg

DRUGS (7)
  1. AMPYRA [Suspect]
     Indication: GAIT DISTURBANCE
     Dosage: 10 MG, Q 12 HRS
     Route: 048
     Dates: start: 20130908, end: 2013
  2. AMPYRA [Suspect]
     Dosage: 10 MG, QD
     Route: 048
     Dates: start: 2013, end: 2013
  3. AMPYRA [Suspect]
     Dosage: 10 MG, Q 12 HRS
     Route: 048
     Dates: start: 20130908
  4. COPAXONE [Concomitant]
     Indication: PRODUCT USED FOR UNKNOWN INDICATION
     Dosage: UNK
  5. AMBIEN [Suspect]
     Indication: MIDDLE INSOMNIA
     Dosage: UNK
     Dates: start: 2013
  6. MOTRIN PM [Suspect]
     Indication: MIDDLE INSOMNIA
     Dosage: UNK
     Dates: start: 2013
  7. TYLENOL PM EXTRA STRENGTH [Suspect]
     Indication: MIDDLE INSOMNIA
     Dosage: UNK
     Dates: start: 2013

REACTIONS (2)
  - Middle insomnia [Not Recovered/Not Resolved]
  - Inappropriate schedule of drug administration [Unknown]
